FAERS Safety Report 22020081 (Version 1)
Quarter: 2023Q1

REPORT INFORMATION
  Report Type: Report from Study
  Country: BE (occurrence: BE)
  Receive Date: 20230222
  Receipt Date: 20230222
  Transmission Date: 20230418
  Serious: Yes (Other)
  Sender: FDA-Public Use
  Company Number: BE-KOREA IPSEN Pharma-2023-01167

PATIENT
  Age: 56 Year
  Sex: Female
  Weight: 77.4 kg

DRUGS (3)
  1. CABOZANTINIB [Suspect]
     Active Substance: CABOZANTINIB
     Indication: Product used for unknown indication
     Dosage: 60 MG, QD
     Dates: start: 20221215, end: 20230124
  2. CABOZANTINIB [Suspect]
     Active Substance: CABOZANTINIB
     Dosage: 40 MG
     Dates: start: 20230125
  3. PANTOMED [Concomitant]
     Indication: Prophylaxis
     Dosage: 40 MG
     Route: 048
     Dates: start: 20230112

REACTIONS (5)
  - Hepatotoxicity [Unknown]
  - Dysuria [Recovered/Resolved]
  - Dyspepsia [Not Recovered/Not Resolved]
  - Fatigue [Not Recovered/Not Resolved]
  - Abdominal pain [Unknown]

NARRATIVE: CASE EVENT DATE: 20221229
